FAERS Safety Report 7062761-5 (Version None)
Quarter: 2010Q4

REPORT INFORMATION
  Report Type: 
  Country: None (occurrence: None)
  Receive Date: 20101026
  Receipt Date: 20100111
  Transmission Date: 20110411
  Serious: No
  Sender: FDA-Public Use
  Company Number: US-PFIZER INC-2009309742

PATIENT
  Sex: Female

DRUGS (2)
  1. LIPITOR [Suspect]
     Indication: BLOOD CHOLESTEROL INCREASED
     Dosage: 20 MG, 1X/DAY
     Route: 048
     Dates: start: 20090101
  2. LAMICTAL [Concomitant]
     Indication: EPILEPSY
     Dosage: UNK

REACTIONS (2)
  - HAEMATOCHEZIA [None]
  - URINARY TRACT INFECTION [None]
